FAERS Safety Report 14161555 (Version 1)
Quarter: 2017Q4

REPORT INFORMATION
  Report Type: Spontaneous
  Country: RO (occurrence: RO)
  Receive Date: 20171106
  Receipt Date: 20171106
  Transmission Date: 20180321
  Serious: Yes (Other)
  Sender: FDA-Public Use
  Company Number: RO-JNJFOC-20171035266

PATIENT
  Age: 52 Year
  Sex: Male
  Weight: 76 kg

DRUGS (2)
  1. DICLOREUM [Concomitant]
     Active Substance: DICLOFENAC SODIUM
     Route: 065
  2. SIMPONI [Suspect]
     Active Substance: GOLIMUMAB
     Indication: ANKYLOSING SPONDYLITIS
     Route: 058
     Dates: start: 20161212, end: 20170905

REACTIONS (1)
  - Acute haemorrhagic ulcerative colitis [Recovering/Resolving]

NARRATIVE: CASE EVENT DATE: 20170905
